FAERS Safety Report 5271920-3 (Version None)
Quarter: 2007Q1

REPORT INFORMATION
  Report Type: 
  Country: None (occurrence: None)
  Receive Date: 20061214
  Receipt Date: 20061004
  Transmission Date: 20070707
  Serious: Yes (Hospitalization)
  Sender: FDA-Public Use
  Company Number: 2006125358

PATIENT
  Age: 75 Year
  Sex: Male
  Weight: 97.5234 kg

DRUGS (2)
  1. BEXTRA [Suspect]
     Indication: EXOSTOSIS
     Dosage: 10 MG (10 MG, 1 IN 1 D)
     Dates: start: 20021014, end: 20040918
  2. BEXTRA [Suspect]
     Indication: MUSCULOSKELETAL PAIN
     Dosage: 10 MG (10 MG, 1 IN 1 D)
     Dates: start: 20021014, end: 20040918

REACTIONS (1)
  - MYOCARDIAL INFARCTION [None]
